FAERS Safety Report 12530071 (Version 1)
Quarter: 2016Q3

REPORT INFORMATION
  Report Type: Spontaneous
  Country: US (occurrence: None)
  Receive Date: 20160705
  Receipt Date: 20160705
  Transmission Date: 20161109
  Serious: Yes (Hospitalization)
  Sender: FDA-Public Use
  Company Number: None

PATIENT
  Age: 42 Year
  Sex: Female
  Weight: 89.81 kg

DRUGS (6)
  1. CIPRO [Suspect]
     Active Substance: CIPROFLOXACIN HYDROCHLORIDE
     Indication: URINARY TRACT INFECTION
     Dosage: 40 TABLET(S) TWICE A DAY TAKEN BY MOUTH
     Route: 048
  2. VITAMIN D3 [Concomitant]
     Active Substance: CHOLECALCIFEROL
  3. REVEAL LOOP RECORDER [Concomitant]
  4. FISH OIL [Concomitant]
     Active Substance: FISH OIL
  5. MVI [Concomitant]
     Active Substance: VITAMINS
  6. PAXIL [Concomitant]
     Active Substance: PAROXETINE HYDROCHLORIDE

REACTIONS (10)
  - Feeling abnormal [None]
  - Paraesthesia [None]
  - Neuropathy peripheral [None]
  - Dizziness [None]
  - Anxiety [None]
  - Tendon pain [None]
  - Muscle contractions involuntary [None]
  - Fatigue [None]
  - Supraventricular tachycardia [None]
  - Impaired work ability [None]

NARRATIVE: CASE EVENT DATE: 20160527
